FAERS Safety Report 5157544-7 (Version None)
Quarter: 2006Q4

REPORT INFORMATION
  Report Type: 
  Country: None (occurrence: None)
  Receive Date: 20061127
  Receipt Date: 20061116
  Transmission Date: 20070319
  Serious: Yes (Hospitalization)
  Sender: FDA-Public Use
  Company Number: CH-GLAXOSMITHKLINE-B0447661A

PATIENT
  Sex: Male

DRUGS (8)
  1. AVANDAMET [Suspect]
     Indication: DRUG USE FOR UNKNOWN INDICATION
     Route: 048
     Dates: start: 20060301
  2. LANTUS [Suspect]
     Indication: DRUG USE FOR UNKNOWN INDICATION
     Route: 058
  3. HUMALOG [Suspect]
     Indication: DRUG USE FOR UNKNOWN INDICATION
     Route: 058
  4. PLAVIX [Concomitant]
     Dosage: 75MG PER DAY
     Route: 048
  5. BELOC-ZOK [Concomitant]
     Route: 048
  6. NEXIUM [Concomitant]
     Dosage: 44.5MG PER DAY
     Route: 048
  7. FLUCTINE [Concomitant]
     Route: 048
  8. ALLOPURINOL [Concomitant]
     Dosage: 300MG PER DAY
     Route: 048

REACTIONS (7)
  - ABDOMINAL TENDERNESS [None]
  - ANAEMIA [None]
  - BLOOD CREATINE PHOSPHOKINASE INCREASED [None]
  - NOCTURNAL DYSPNOEA [None]
  - OEDEMA [None]
  - PAIN IN EXTREMITY [None]
  - WEIGHT INCREASED [None]
